FAERS Safety Report 11436891 (Version 4)
Quarter: 2016Q1

REPORT INFORMATION
  Report Type: Spontaneous
  Country: US (occurrence: US)
  Receive Date: 20150831
  Receipt Date: 20160107
  Transmission Date: 20160525
  Serious: No
  Sender: FDA-Public Use
  Company Number: US-PFIZER INC-2015286037

PATIENT
  Age: 64 Year
  Sex: Female

DRUGS (3)
  1. CLEOCIN [Suspect]
     Active Substance: CLINDAMYCIN PHOSPHATE
     Dosage: UNK, 1X/DAY
  2. CLEOCIN [Suspect]
     Active Substance: CLINDAMYCIN PHOSPHATE
     Indication: BACTERIAL VAGINOSIS
     Dosage: 100 MG, (INSERT 1 VAGINALLY AT BEDTIME)
     Route: 067
  3. CLEOCIN [Suspect]
     Active Substance: CLINDAMYCIN PHOSPHATE
     Dosage: 1 DF, 1X/DAY
     Route: 067
     Dates: start: 20150820

REACTIONS (3)
  - Vulvovaginal burning sensation [Recovered/Resolved]
  - Thermal burn [Recovered/Resolved]
  - Local reaction [Recovered/Resolved]
